FAERS Safety Report 6842534-6 (Version None)
Quarter: 2010Q3

REPORT INFORMATION
  Report Type: 
  Country: None (occurrence: None)
  Receive Date: 20100714
  Receipt Date: 20070801
  Transmission Date: 20110219
  Serious: No
  Sender: FDA-Public Use
  Company Number: US-PFIZER INC-2007064735

PATIENT
  Sex: Female
  Weight: 70 kg

DRUGS (7)
  1. CHANTIX [Suspect]
     Indication: SMOKING CESSATION THERAPY
     Route: 048
     Dates: start: 20070720
  2. LOTREL [Concomitant]
  3. PAXIL [Concomitant]
  4. SPIRIVA [Concomitant]
  5. NASONEX [Concomitant]
  6. PREMARIN [Concomitant]
  7. ASTELIN [Concomitant]

REACTIONS (1)
  - MUSCLE SPASMS [None]
